FAERS Safety Report 22237800 (Version 1)
Quarter: 2023Q2

REPORT INFORMATION
  Report Type: Spontaneous
  Country: US (occurrence: None)
  Receive Date: 20230421
  Receipt Date: 20230421
  Transmission Date: 20230722
  Serious: No
  Sender: FDA-Public Use
  Company Number: 2023A091113

PATIENT

DRUGS (1)
  1. TAGRISSO [Suspect]
     Active Substance: OSIMERTINIB
     Route: 048

REACTIONS (5)
  - Platelet count abnormal [Unknown]
  - Blood sodium abnormal [Unknown]
  - Haemoglobin abnormal [Unknown]
  - Blood potassium abnormal [Unknown]
  - Laboratory test abnormal [Unknown]
